FAERS Safety Report 16034928 (Version 1)
Quarter: 2019Q1

REPORT INFORMATION
  Report Type: Spontaneous
  Country: US (occurrence: US)
  Receive Date: 20190305
  Receipt Date: 20190305
  Transmission Date: 20190418
  Serious: Yes (Other)
  Sender: FDA-Public Use
  Company Number: US-BAYER-2019-045121

PATIENT
  Age: 17 Year
  Sex: Female

DRUGS (2)
  1. MIRENA [Suspect]
     Active Substance: LEVONORGESTREL
     Dosage: 20 MCG/24HR, CONT
     Route: 015
     Dates: start: 201306, end: 201702
  2. MIRENA [Suspect]
     Active Substance: LEVONORGESTREL

REACTIONS (14)
  - Vision blurred [None]
  - Back pain [None]
  - Musculoskeletal pain [None]
  - Visual field defect [None]
  - Diplopia [None]
  - Tinnitus [None]
  - Visual impairment [None]
  - Cognitive disorder [None]
  - Nausea [None]
  - Dizziness [None]
  - Neck pain [None]
  - Intracranial pressure increased [None]
  - Loss of consciousness [None]
  - Headache [None]

NARRATIVE: CASE EVENT DATE: 201603
